FAERS Safety Report 4273507-8 (Version None)
Quarter: 2004Q1

REPORT INFORMATION
  Report Type: 
  Country: None (occurrence: None)
  Receive Date: 20040119
  Receipt Date: 20040108
  Transmission Date: 20041129
  Serious: Yes (Hospitalization)
  Sender: FDA-Public Use
  Company Number: US-GLAXOSMITHKLINE-B0319624A

PATIENT
  Age: 86 Year
  Sex: Male

DRUGS (1)
  1. VALACYCLOVIR HCL [Suspect]
     Indication: RASH VESICULAR
     Dosage: 1G THREE TIMES PER DAY
     Route: 065

REACTIONS (4)
  - BALANCE DISORDER [None]
  - CONVULSION [None]
  - HEADACHE [None]
  - MENINGITIS ASEPTIC [None]
